FAERS Safety Report 15996880 (Version 1)
Quarter: 2019Q1

REPORT INFORMATION
  Report Type: Spontaneous
  Country: RU (occurrence: RU)
  Receive Date: 20190222
  Receipt Date: 20190222
  Transmission Date: 20190418
  Serious: Yes (Hospitalization)
  Sender: FDA-Public Use
  Company Number: RU-SA-2018SA325341

PATIENT
  Age: 68 Year
  Sex: Female
  Weight: 90 kg

DRUGS (8)
  1. ROSINSULIN P [Concomitant]
     Indication: TYPE 2 DIABETES MELLITUS
     Dosage: AT THE RATE OF 2 IU OF INSULIN PER 1 BU, 3 TIMES A DAY
     Route: 058
  2. ROSINSULIN S [Concomitant]
     Indication: TYPE 2 DIABETES MELLITUS
     Dosage: 20 IU IN THE MORNING + 22 IU IN THE EVENING
     Route: 058
  3. LANTUS [Suspect]
     Active Substance: INSULIN GLARGINE
     Dosage: 40 IU, QD
     Route: 058
  4. APIDRA [Suspect]
     Active Substance: INSULIN GLULISINE
     Indication: TYPE 2 DIABETES MELLITUS
     Dosage: 2 IU, TID
     Route: 058
     Dates: start: 20181123
  5. APIDRA [Suspect]
     Active Substance: INSULIN GLULISINE
     Dosage: 3 IU, TID
     Route: 058
  6. LOZAP [LOSARTAN POTASSIUM] [Concomitant]
     Indication: HYPERTENSION
     Dosage: 1 DF, QD
     Route: 048
  7. AMLODIPINE [Concomitant]
     Active Substance: AMLODIPINE BESYLATE
     Indication: HYPERTENSION
     Dosage: 15 MG, QD
     Route: 048
  8. LANTUS [Suspect]
     Active Substance: INSULIN GLARGINE
     Indication: TYPE 2 DIABETES MELLITUS
     Dosage: 36 IU, QD
     Route: 058
     Dates: start: 20181123

REACTIONS (5)
  - Blood glucose increased [Unknown]
  - Hypoglycaemia [Recovered/Resolved]
  - Cardiac disorder [Unknown]
  - Hyperglycaemia [Recovered/Resolved]
  - Hyperglycaemia [Not Recovered/Not Resolved]

NARRATIVE: CASE EVENT DATE: 20190121
